FAERS Safety Report 9557424 (Version 1)
Quarter: 2013Q3

REPORT INFORMATION
  Report Type: Spontaneous
  Country: FR (occurrence: None)
  Receive Date: 20130924
  Receipt Date: 20130924
  Transmission Date: 20140515
  Serious: Yes (Disabling)
  Sender: FDA-Public Use
  Company Number: FR-20130361

PATIENT
  Age: 30 Year
  Sex: Female

DRUGS (1)
  1. HEXABRIX [Suspect]
     Indication: ARTHROGRAM
     Dosage: 20 ML (20 ML, 1 IN 1 TOTAL)
     Route: 014
     Dates: start: 20130910, end: 20130910

REACTIONS (2)
  - Injection site joint pain [None]
  - Walking disability [None]
